FAERS Safety Report 16278074 (Version 2)
Quarter: 2019Q2

REPORT INFORMATION
  Report Type: Spontaneous
  Country: NL (occurrence: NL)
  Receive Date: 20190506
  Receipt Date: 20190509
  Transmission Date: 20190711
  Serious: Yes (Death)
  Sender: FDA-Public Use
  Company Number: NL-BAYER-2019-089268

PATIENT
  Age: 74 Year
  Sex: Male

DRUGS (4)
  1. ENZALUTAMIDE [Concomitant]
     Active Substance: ENZALUTAMIDE
  2. DOCETAXEL. [Concomitant]
     Active Substance: DOCETAXEL
  3. XOFIGO [Suspect]
     Active Substance: RADIUM RA-223 DICHLORIDE
     Indication: PROSTATE CANCER
     Dosage: 5.86 MBQ, UNK (FIRST INJECTION)
     Dates: start: 20190423
  4. XOFIGO [Suspect]
     Active Substance: RADIUM RA-223 DICHLORIDE
     Indication: METASTASES TO BONE

REACTIONS (2)
  - Respiratory failure [Fatal]
  - Cardiac failure [Fatal]
